FAERS Safety Report 5827588-8 (Version None)
Quarter: 2008Q3

REPORT INFORMATION
  Report Type: 
  Country: None (occurrence: None)
  Receive Date: 20080730
  Receipt Date: 20080728
  Transmission Date: 20090109
  Serious: Yes (Hospitalization)
  Sender: FDA-Public Use
  Company Number: US-BOEHRINGER INGELHEIM GMBH, GERMANY-2008-DE-04418GD

PATIENT
  Age: 89 Year
  Sex: Male

DRUGS (1)
  1. AGGRENOX [Suspect]

REACTIONS (5)
  - ACUTE CORONARY SYNDROME [None]
  - HEADACHE [None]
  - NAUSEA [None]
  - TACHYCARDIA [None]
  - VOMITING [None]
